FAERS Safety Report 17873415 (Version 1)
Quarter: 2020Q2

REPORT INFORMATION
  Report Type: Report from Study
  Country: MY (occurrence: MY)
  Receive Date: 20200609
  Receipt Date: 20200609
  Transmission Date: 20200714
  Serious: Yes (Hospitalization, Other)
  Sender: FDA-Public Use
  Company Number: MY-TOLMAR, INC.-2018MY012654

PATIENT

DRUGS (31)
  1. MORPHINE [Concomitant]
     Active Substance: MORPHINE
     Indication: BACK PAIN
     Dosage: 30 MG
     Route: 058
     Dates: start: 20190125, end: 20190201
  2. GLYCERIN [GLYCEROL] [Concomitant]
     Active Substance: GLYCERIN
     Indication: CONSTIPATION PROPHYLAXIS
     Dosage: 20 UNK
     Route: 054
     Dates: start: 20190126, end: 20190202
  3. GLYCERIN [GLYCEROL] [Concomitant]
     Active Substance: GLYCERIN
     Indication: BACK PAIN
  4. IPRATROPIUM [IPRATROPIUM BROMIDE] [Concomitant]
     Active Substance: IPRATROPIUM BROMIDE
     Indication: PRODUCT USED FOR UNKNOWN INDICATION
     Dosage: 500 MICROGRAM
  5. PREGABALIN. [Concomitant]
     Active Substance: PREGABALIN
     Indication: BACK PAIN
     Dosage: 150 MG
     Route: 048
     Dates: start: 20190126, end: 20190222
  6. ELIGARD [Suspect]
     Active Substance: LEUPROLIDE ACETATE
     Indication: HORMONE-DEPENDENT PROSTATE CANCER
     Dosage: 22.5 MG, Q 3 MONTH
     Route: 058
     Dates: start: 20180323, end: 20181211
  7. SALBUTAMOL [Concomitant]
     Active Substance: ALBUTEROL
     Dosage: 100 MICROGRAM
     Dates: start: 20190208, end: 20190308
  8. DEXAMETHASONE. [Concomitant]
     Active Substance: DEXAMETHASONE
     Dosage: 16 GRAM
     Route: 042
     Dates: start: 20190203, end: 20190208
  9. SODIUM CHLORIDE. [Concomitant]
     Active Substance: SODIUM CHLORIDE
     Indication: BACK PAIN
     Dosage: 1500 MG
     Route: 048
     Dates: start: 20190203, end: 20190222
  10. PANTOPRAZOLE [Concomitant]
     Active Substance: PANTOPRAZOLE
     Indication: BACK PAIN
     Dosage: 40 MG
     Route: 042
     Dates: start: 20190204, end: 20190208
  11. DEXAMETHASONE. [Concomitant]
     Active Substance: DEXAMETHASONE
     Indication: BACK PAIN
     Dosage: 24 MG
     Route: 042
     Dates: start: 20190125, end: 20190202
  12. HYDROCORTISONE SODIUM SUCCINATE [Concomitant]
     Active Substance: HYDROCORTISONE SODIUM SUCCINATE
     Indication: CHRONIC OBSTRUCTIVE PULMONARY DISEASE
     Dosage: 300 MG
     Route: 042
     Dates: start: 20190204, end: 20190204
  13. SALBUTAMOL [Concomitant]
     Active Substance: ALBUTEROL
     Indication: CHRONIC OBSTRUCTIVE PULMONARY DISEASE
     Dosage: 5 MG
     Dates: start: 20190125, end: 20190208
  14. PIPERACILLIN AND TAZOBACTAM [Concomitant]
     Active Substance: PIPERACILLIN SODIUM\TAZOBACTAM SODIUM
     Indication: BACK PAIN
     Dosage: 18 GRAM
     Route: 042
     Dates: start: 20190204, end: 20190208
  15. PANTOPRAZOLE [Concomitant]
     Active Substance: PANTOPRAZOLE
     Dosage: 40 MG
     Route: 048
     Dates: start: 20190207, end: 20190222
  16. BICALUTAMIDE. [Concomitant]
     Active Substance: BICALUTAMIDE
     Indication: PROSTATIC SPECIFIC ANTIGEN INCREASED
     Dosage: 50 MG
     Route: 048
     Dates: start: 20190322
  17. MORPHINE [Concomitant]
     Active Substance: MORPHINE
     Dosage: 30 MG
     Route: 048
     Dates: start: 20190208, end: 20190222
  18. EPERISONE [Concomitant]
     Active Substance: EPERISONE
     Indication: BACK PAIN
     Dosage: 150 MG
     Route: 048
     Dates: start: 20190126, end: 20190222
  19. PREDNISOLONE. [Concomitant]
     Active Substance: PREDNISOLONE
     Indication: BACK PAIN
     Dosage: 50 MG
     Route: 048
     Dates: start: 20190205, end: 20190210
  20. CO-AMOXICLAV [AMOXICILLIN;CLAVULANATE POTASSIUM] [Concomitant]
     Active Substance: AMOXICILLIN\CLAVULANATE POTASSIUM
     Indication: BACK PAIN
     Dosage: 1250 MG
     Route: 048
     Dates: start: 20190208, end: 20190215
  21. CALCIUM LACTATE US [Concomitant]
     Indication: BACK PAIN
     Dosage: 1200 MG
     Route: 048
     Dates: start: 20190208, end: 20190222
  22. CALCITRIOL. [Concomitant]
     Active Substance: CALCITRIOL
     Indication: BACK PAIN
     Dosage: 500 NANOGRAM
     Route: 048
     Dates: start: 20190208, end: 20190222
  23. OMEPRAZOLE. [Concomitant]
     Active Substance: OMEPRAZOLE
     Indication: BACK PAIN
     Dosage: 40 MG
     Route: 048
     Dates: start: 20190125, end: 20190210
  24. SALBUTAMOL [Concomitant]
     Active Substance: ALBUTEROL
     Dosage: 5 MG NEBULIZER SOLUTION 10500 MCG RESPIRATORY
     Dates: start: 20190126, end: 20190210
  25. NEUROBION [CYANOCOBALAMIN;PYRIDOXINE;THIAMINE] [Concomitant]
     Indication: BACK PAIN
     Dosage: 1 DOSAGE FORM
     Route: 048
     Dates: start: 20190126, end: 20190222
  26. LACTULOSE. [Concomitant]
     Active Substance: LACTULOSE
     Indication: BACK PAIN
     Dosage: 45 MG
     Route: 048
     Dates: start: 20190126, end: 20190222
  27. HYDROCORTISONE SODIUM SUCCINATE [Concomitant]
     Active Substance: HYDROCORTISONE SODIUM SUCCINATE
     Indication: PREMEDICATION
     Dosage: 200 MG
     Route: 042
     Dates: start: 20190125, end: 20190125
  28. MORPHINE [Concomitant]
     Active Substance: MORPHINE
     Dosage: 20 MG
     Route: 048
     Dates: start: 20190128, end: 20190204
  29. OMEPRAZOLE. [Concomitant]
     Active Substance: OMEPRAZOLE
     Dosage: 20 MG
     Route: 048
     Dates: start: 20190207, end: 20190214
  30. LACTULOSE. [Concomitant]
     Active Substance: LACTULOSE
     Indication: CONSTIPATION
     Dosage: 15 MG
     Route: 048
     Dates: start: 20190128, end: 20190203
  31. HYDROCORTISONE SODIUM SUCCINATE [Concomitant]
     Active Substance: HYDROCORTISONE SODIUM SUCCINATE
     Indication: BACK PAIN
     Dosage: 300 MG
     Route: 042
     Dates: start: 20190204, end: 20190208

REACTIONS (1)
  - Inguinal hernia, obstructive [Recovered/Resolved]

NARRATIVE: CASE EVENT DATE: 20181201
